FAERS Safety Report 5449796-0 (Version None)
Quarter: 2007Q3

REPORT INFORMATION
  Report Type: 
  Country: None (occurrence: None)
  Receive Date: 20070912
  Receipt Date: 20070905
  Transmission Date: 20080115
  Serious: Yes (Life-Threatening, Hospitalization)
  Sender: FDA-Public Use
  Company Number: GB-JNJFOC-20070901813

PATIENT
  Sex: Male

DRUGS (4)
  1. REOPRO [Suspect]
     Indication: ACUTE CORONARY SYNDROME
     Route: 042
  2. HEPARIN [Concomitant]
  3. ASPIRIN [Concomitant]
  4. CLOPIDOGREL [Concomitant]

REACTIONS (1)
  - PERICARDIAL HAEMORRHAGE [None]
